FAERS Safety Report 12319289 (Version 1)
Quarter: 2016Q2

REPORT INFORMATION
  Report Type: Spontaneous
  Country: US (occurrence: US)
  Receive Date: 20160429
  Receipt Date: 20160429
  Transmission Date: 20160815
  Serious: No
  Sender: FDA-Public Use
  Company Number: US-ROCHE-1611457

PATIENT
  Age: 68 Year
  Sex: Male

DRUGS (2)
  1. JANTOVEN [Concomitant]
     Active Substance: WARFARIN SODIUM
     Indication: ATRIAL FIBRILLATION
  2. AVASTIN [Suspect]
     Active Substance: BEVACIZUMAB
     Indication: MACULAR DEGENERATION
     Route: 031

REACTIONS (5)
  - Confusional state [Unknown]
  - Fatigue [Unknown]
  - Lethargy [Unknown]
  - Disorientation [Unknown]
  - Off label use [Unknown]
